FAERS Safety Report 24655866 (Version 3)
Quarter: 2025Q1

REPORT INFORMATION
  Report Type: Spontaneous
  Country: US (occurrence: US)
  Receive Date: 20241124
  Receipt Date: 20250307
  Transmission Date: 20250409
  Serious: No
  Sender: SANOFI AVENTIS
  Company Number: US-SA-2024SA337268

PATIENT
  Age: 8 Year
  Sex: Female

DRUGS (6)
  1. DUPIXENT [Suspect]
     Active Substance: DUPILUMAB
     Indication: Dermatitis atopic
     Route: 058
     Dates: start: 20241022
  2. ALBUTEROL SULFATE [Concomitant]
     Active Substance: ALBUTEROL SULFATE
     Route: 055
  3. ALBUTEROL SULFATE [Concomitant]
     Active Substance: ALBUTEROL SULFATE
  4. FLOVENT [Concomitant]
     Active Substance: FLUTICASONE PROPIONATE
  5. LORATADINE [Concomitant]
     Active Substance: LORATADINE
     Route: 048
  6. Up4 Probiotic + Prebiotic [Concomitant]
     Route: 048

REACTIONS (6)
  - Dry skin [Unknown]
  - Rash erythematous [Recovering/Resolving]
  - Pallor [Unknown]
  - Pain of skin [Unknown]
  - Injection site rash [Recovering/Resolving]
  - Injection site erythema [Recovering/Resolving]

NARRATIVE: CASE EVENT DATE: 20241001
